FAERS Safety Report 24213073 (Version 1)
Quarter: 2024Q3

REPORT INFORMATION
  Report Type: Spontaneous
  Country: ES (occurrence: ES)
  Receive Date: 20240815
  Receipt Date: 20240815
  Transmission Date: 20241017
  Serious: Yes (Hospitalization)
  Sender: LUNDBECK
  Company Number: None

PATIENT

DRUGS (4)
  1. VYEPTI [Suspect]
     Active Substance: EPTINEZUMAB\EPTINEZUMAB-JJMR
     Indication: Migraine
     Dosage: 100 MILLIGRAM
     Route: 041
     Dates: start: 20240524, end: 20240524
  2. NIFEDIPINE [Concomitant]
     Active Substance: NIFEDIPINE
     Indication: Hypertension
     Dosage: 30 MILLIGRAM
     Route: 048
     Dates: start: 20240620
  3. LOSARTAN [Suspect]
     Active Substance: LOSARTAN\LOSARTAN POTASSIUM
     Indication: Hypertension
     Dosage: 1 DOSAGE FORM
     Route: 048
     Dates: start: 20240620
  4. BISOPROLOL [Concomitant]
     Active Substance: BISOPROLOL\BISOPROLOL FUMARATE
     Indication: Hypertension
     Dosage: 2.5 MILLIGRAM
     Route: 048
     Dates: start: 20240522

REACTIONS (3)
  - Anaemia [Unknown]
  - Vasculitis [Unknown]
  - Acute kidney injury [Unknown]

NARRATIVE: CASE EVENT DATE: 20240627
